FAERS Safety Report 6881817-0 (Version None)
Quarter: 2010Q3

REPORT INFORMATION
  Report Type: 
  Country: None (occurrence: None)
  Receive Date: 20100728
  Receipt Date: 20100728
  Transmission Date: 20110219
  Serious: Yes (Life-Threatening, Hospitalization)
  Sender: FDA-Public Use
  Company Number: None

PATIENT
  Sex: Female
  Weight: 25.0386 kg

DRUGS (8)
  1. AVALIDE [Suspect]
     Indication: HYPERTENSION
     Dosage: 300/12.5 MG ONCE DAILY PO
     Route: 048
     Dates: start: 20100501
  2. CALTRATE + D [Concomitant]
  3. PREMARIN [Concomitant]
  4. IMDUR [Concomitant]
  5. M.V.I. [Concomitant]
  6. SULAR [Concomitant]
  7. NITROSTAT [Concomitant]
  8. PROTONIX [Concomitant]

REACTIONS (3)
  - CARDIAC ARREST [None]
  - ENDOTRACHEAL INTUBATION COMPLICATION [None]
  - SWOLLEN TONGUE [None]
